FAERS Safety Report 5305754-8 (Version None)
Quarter: 2007Q2

REPORT INFORMATION
  Report Type: 
  Country: None (occurrence: None)
  Receive Date: 20070424
  Receipt Date: 20070411
  Transmission Date: 20071010
  Serious: Yes (Other)
  Sender: FDA-Public Use
  Company Number: AU-ELI_LILLY_AND_COMPANY-AU200704003139

PATIENT
  Age: 35 Year
  Sex: Female

DRUGS (3)
  1. ZYPREXA [Suspect]
     Dosage: 10 MG, EACH EVENING
     Route: 048
     Dates: end: 20070101
  2. AVANZA [Concomitant]
  3. EFFEXOR [Concomitant]

REACTIONS (2)
  - CONVULSION [None]
  - FRONTAL LOBE EPILEPSY [None]
